FAERS Safety Report 15366504 (Version 1)
Quarter: 2018Q3

REPORT INFORMATION
  Report Type: Spontaneous
  Country: US (occurrence: US)
  Receive Date: 20180831
  Receipt Date: 20180831
  Transmission Date: 20181010
  Serious: Yes (Life-Threatening, Hospitalization)
  Sender: FDA-Public Use
  Company Number: None

PATIENT
  Age: 68 Year
  Sex: Male
  Weight: 70 kg

DRUGS (3)
  1. LISINOPRIL. [Suspect]
     Active Substance: LISINOPRIL
     Route: 048
  2. ASPIRIN 81 MG [Concomitant]
     Active Substance: ASPIRIN
  3. METOPROLOL 25 MG [Concomitant]
     Active Substance: METOPROLOL

REACTIONS (1)
  - Angioedema [None]

NARRATIVE: CASE EVENT DATE: 20180708
